FAERS Safety Report 7244377-0 (Version None)
Quarter: 2011Q1

REPORT INFORMATION
  Report Type: 
  Country: None (occurrence: None)
  Receive Date: 20110119
  Receipt Date: 20110119
  Transmission Date: 20110831
  Serious: Yes (Life-Threatening)
  Sender: FDA-Public Use
  Company Number: None

PATIENT
  Sex: Male
  Weight: 71.4869 kg

DRUGS (1)
  1. NIASPAN [Suspect]
     Indication: DYSLIPIDAEMIA
     Dosage: 500 MG BEDTIME PO
     Route: 048
     Dates: start: 20110112, end: 20110112

REACTIONS (5)
  - APNOEA [None]
  - FLUSHING [None]
  - CYANOSIS [None]
  - COLD SWEAT [None]
  - CARDIAC ARREST [None]
